FAERS Safety Report 5269202-9 (Version None)
Quarter: 2007Q1

REPORT INFORMATION
  Report Type: 
  Country: None (occurrence: None)
  Receive Date: 20070319
  Receipt Date: 20070308
  Transmission Date: 20070707
  Serious: Yes (Death)
  Sender: FDA-Public Use
  Company Number: US-AMGEN-US214371

PATIENT
  Sex: Male

DRUGS (1)
  1. PALIFERMIN - BLINDED [Suspect]
     Indication: STOMATITIS
     Route: 042
     Dates: start: 20060126, end: 20070302

REACTIONS (3)
  - LOSS OF CONSCIOUSNESS [None]
  - OBSTRUCTIVE AIRWAYS DISORDER [None]
  - TRACHEOSTOMY MALFUNCTION [None]
